FAERS Safety Report 15476925 (Version 1)
Quarter: 2018Q4

REPORT INFORMATION
  Report Type: Spontaneous
  Country: US (occurrence: US)
  Receive Date: 20181007
  Receipt Date: 20181007
  Transmission Date: 20190205
  Serious: Yes (Disabling)
  Sender: FDA-Public Use
  Company Number: None

PATIENT
  Age: 52 Year
  Sex: Female
  Weight: 57.15 kg

DRUGS (7)
  1. CIPROFLOXACIN HCL [Suspect]
     Active Substance: CIPROFLOXACIN HYDROCHLORIDE
     Indication: URINARY TRACT INFECTION
     Dosage: ?          QUANTITY:1 TABLET(S);?
     Route: 048
     Dates: start: 20180319, end: 20180319
  2. VITAMIN C [Concomitant]
     Active Substance: ASCORBIC ACID
  3. MAGNESIUM [Concomitant]
     Active Substance: MAGNESIUM
  4. COLLAGEN [Concomitant]
     Active Substance: COLLAGEN
  5. NAC [Concomitant]
  6. RESVERATROL [Concomitant]
     Active Substance: DIETARY SUPPLEMENT\RESVERATROL
  7. COQ-10 UBIQUINOL [Concomitant]

REACTIONS (12)
  - Neck pain [None]
  - Headache [None]
  - Hypoaesthesia [None]
  - Blepharospasm [None]
  - Neuropathy peripheral [None]
  - Muscle spasms [None]
  - Paraesthesia [None]
  - Burning sensation [None]
  - Muscular weakness [None]
  - Arthralgia [None]
  - Tendonitis [None]
  - Insomnia [None]

NARRATIVE: CASE EVENT DATE: 20180319
